FAERS Safety Report 5381038-7 (Version None)
Quarter: 2007Q2

REPORT INFORMATION
  Report Type: 
  Country: None (occurrence: None)
  Receive Date: 20070629
  Receipt Date: 20070131
  Transmission Date: 20071010
  Serious: Yes (Hospitalization, Other)
  Sender: FDA-Public Use
  Company Number: US200611004996

PATIENT
  Age: 58 Year
  Sex: Female

DRUGS (5)
  1. HUMULIN L [Suspect]
     Indication: DIABETES MELLITUS
     Dosage: 7 U, EACH MORNING
  2. HUMALOG [Suspect]
     Indication: DIABETES MELLITUS
     Dosage: AS NEEDED
     Dates: start: 19980101, end: 20070128
  3. INSULIN, ANIMAL(INSULIN, ANIMAL UNKNOWN FORMULATION) UNKNOWN [Suspect]
     Indication: DIABETES MELLITUS
     Dates: start: 19490101
  4. MULTIVITAMINS (ASCORBIC ACID, ERGOCALCIFEROL, FOLIC ACID, NICOTINAMIDE [Concomitant]
  5. FERROUS SULFATE TAB [Concomitant]

REACTIONS (25)
  - ANXIETY [None]
  - ASTHENIA [None]
  - BACK PAIN [None]
  - BLOOD GLUCOSE INCREASED [None]
  - BONE DEVELOPMENT ABNORMAL [None]
  - BONE DISORDER [None]
  - BONE PAIN [None]
  - FALL [None]
  - HEAD INJURY [None]
  - IMPAIRED HEALING [None]
  - INTERVERTEBRAL DISC DISORDER [None]
  - LIMB DISCOMFORT [None]
  - LOSS OF CONSCIOUSNESS [None]
  - LOWER LIMB FRACTURE [None]
  - MOBILITY DECREASED [None]
  - MULTIPLE FRACTURES [None]
  - MUSCULOSKELETAL PAIN [None]
  - MYALGIA [None]
  - NEUROPATHY [None]
  - ORAL PAIN [None]
  - ROAD TRAFFIC ACCIDENT [None]
  - SHOCK [None]
  - SHOULDER DEFORMITY [None]
  - SOFT TISSUE DISORDER [None]
  - STOMACH DISCOMFORT [None]
